FAERS Safety Report 7492733-8 (Version None)
Quarter: 2011Q2

REPORT INFORMATION
  Report Type: 
  Country: None (occurrence: None)
  Receive Date: 20110519
  Receipt Date: 20110513
  Transmission Date: 20111010
  Serious: Yes (Other)
  Sender: FDA-Public Use
  Company Number: US-GILEAD-2011-0035544

PATIENT
  Age: 36 Year
  Sex: Female

DRUGS (5)
  1. LETAIRIS [Suspect]
     Route: 048
     Dates: start: 20101001, end: 20101101
  2. WARFARIN SODIUM [Concomitant]
  3. FUROSEMIDE [Concomitant]
  4. LETAIRIS [Suspect]
     Indication: PULMONARY HYPERTENSION
     Route: 048
     Dates: start: 20101101, end: 20110513
  5. KLOR-CON [Concomitant]

REACTIONS (1)
  - PREGNANCY [None]
